FAERS Safety Report 8406261-6 (Version None)
Quarter: 2012Q2

REPORT INFORMATION
  Report Type: 
  Country: None (occurrence: None)
  Receive Date: 20120604
  Receipt Date: 20120528
  Transmission Date: 20120825
  Serious: Yes (Other)
  Sender: FDA-Public Use
  Company Number: PHHY2011JP101718

PATIENT
  Sex: Female
  Weight: 36 kg

DRUGS (8)
  1. ALFAROL [Concomitant]
     Dosage: 0.5 UG, UNK
     Route: 048
  2. EXJADE [Suspect]
     Dosage: 1000 MG, DAILY
     Route: 048
     Dates: start: 20090410, end: 20090424
  3. FOSAMAX [Concomitant]
     Dosage: 5 MG, UNK
     Route: 048
  4. PRAVASTATIN SODIUM [Concomitant]
     Dosage: 10 MG, UNK
     Route: 048
  5. EXJADE [Suspect]
     Dosage: 1000 MG, DAILY
     Route: 048
     Dates: start: 20090226, end: 20090330
  6. CALBLOCK [Concomitant]
     Dosage: 16 MG, UNK
     Route: 048
  7. GLAKAY [Concomitant]
     Dosage: 45 MG, UNK
     Route: 048
  8. EXJADE [Suspect]
     Indication: IRON OVERLOAD
     Dosage: 500 MG, DAILY
     Route: 048
     Dates: start: 20090213, end: 20090225

REACTIONS (5)
  - LIVER DISORDER [None]
  - HAEMOSIDEROSIS [None]
  - HEPATITIS [None]
  - FATIGUE [None]
  - PERIPORTAL OEDEMA [None]
